FAERS Safety Report 13135791 (Version 4)
Quarter: 2017Q2

REPORT INFORMATION
  Report Type: Report from Study
  Country: US (occurrence: US)
  Receive Date: 20170120
  Receipt Date: 20170424
  Transmission Date: 20170830
  Serious: Yes (Hospitalization)
  Sender: FDA-Public Use
  Company Number: US-ACTELION-A-US2017-148469

PATIENT
  Age: 82 Year
  Sex: Female

DRUGS (2)
  1. COREG [Concomitant]
     Active Substance: CARVEDILOL
     Dosage: UNK
     Dates: end: 20170301
  2. OPSUMIT [Suspect]
     Active Substance: MACITENTAN
     Indication: PULMONARY ARTERIAL HYPERTENSION
     Dosage: 10 MG, QD
     Route: 048
     Dates: start: 20161009

REACTIONS (16)
  - Pain [Recovered/Resolved]
  - Cellulitis [Recovered/Resolved]
  - Erythema [Recovered/Resolved]
  - Cardiac pacemaker insertion [Unknown]
  - Fluid overload [Unknown]
  - Swelling [Unknown]
  - Condition aggravated [Unknown]
  - Dyspnoea [Unknown]
  - Tibia fracture [Unknown]
  - Pulmonary hypertension [Unknown]
  - Oedema peripheral [Recovered/Resolved]
  - Cardiorenal syndrome [Unknown]
  - Pneumonia [Unknown]
  - Gastrointestinal hypomotility [Recovered/Resolved]
  - Syncope [Recovered/Resolved with Sequelae]
  - Acute kidney injury [Unknown]

NARRATIVE: CASE EVENT DATE: 20161028
